FAERS Safety Report 8520868-7 (Version None)
Quarter: 2012Q2

REPORT INFORMATION
  Report Type: 
  Country: None (occurrence: None)
  Receive Date: 20120409
  Receipt Date: 20120208
  Transmission Date: 20120825
  Serious: Yes (Other)
  Sender: FDA-Public Use
  Company Number: PHEH2012US003183

PATIENT
  Age: 79 Year
  Sex: Male

DRUGS (1)
  1. VALTURNA [Suspect]
     Indication: HYPERTENSION
     Dosage: 1 DF (300/320 MG), QD, ORAL
     Route: 048
     Dates: start: 20091201, end: 20110520

REACTIONS (3)
  - BLOOD PRESSURE DECREASED [None]
  - BLOOD POTASSIUM INCREASED [None]
  - ABDOMINAL DISCOMFORT [None]
